FAERS Safety Report 6094685-4 (Version None)
Quarter: 2009Q1

REPORT INFORMATION
  Report Type: 
  Country: None (occurrence: None)
  Receive Date: 20090226
  Receipt Date: 20090216
  Transmission Date: 20090719
  Serious: Yes (Death, Hospitalization)
  Sender: FDA-Public Use
  Company Number: FR-MERCK-0902FRA00044

PATIENT
  Age: 79 Year
  Sex: Male

DRUGS (8)
  1. ZOCOR [Suspect]
     Indication: HYPERCHOLESTEROLAEMIA
     Route: 048
     Dates: end: 20080821
  2. COZAAR [Suspect]
     Indication: HYPERTENSION
     Route: 048
     Dates: end: 20080821
  3. TAMSULOSIN HYDROCHLORIDE [Suspect]
     Indication: BENIGN PROSTATIC HYPERPLASIA
     Route: 048
     Dates: end: 20080821
  4. INDAPAMIDE [Suspect]
     Indication: HYPERTENSION
     Route: 048
     Dates: end: 20080821
  5. BUDESONIDE [Concomitant]
  6. BROMPHENIRAMINE MALEATE [Concomitant]
     Route: 048
     Dates: start: 20080811, end: 20080817
  7. MICONAZOLE NITRATE [Concomitant]
     Route: 061
     Dates: start: 20080811, end: 20080817
  8. IBUPROFEN [Concomitant]
     Route: 065
     Dates: start: 20080811, end: 20080817

REACTIONS (1)
  - PULMONARY FIBROSIS [None]
